FAERS Safety Report 17668844 (Version 1)
Quarter: 2020Q2

REPORT INFORMATION
  Report Type: Spontaneous
  Country: FR (occurrence: FR)
  Receive Date: 20200415
  Receipt Date: 20200415
  Transmission Date: 20200713
  Serious: Yes (Hospitalization)
  Sender: FDA-Public Use
  Company Number: FR-TEVA-2020-FR-1223077

PATIENT
  Age: 71 Year
  Sex: Male
  Weight: 90 kg

DRUGS (2)
  1. CEFPODOXIME [Concomitant]
     Active Substance: CEFPODOXIME
     Indication: COUGH
     Dosage: 200 MG
     Route: 048
     Dates: start: 20200220, end: 20200301
  2. PREDNISONE. [Suspect]
     Active Substance: PREDNISONE
     Indication: COUGH
     Dosage: 60 MG
     Route: 048
     Dates: start: 20200220, end: 20200225

REACTIONS (1)
  - Acute respiratory failure [Recovering/Resolving]

NARRATIVE: CASE EVENT DATE: 20200323
